FAERS Safety Report 7709578-3 (Version None)
Quarter: 2011Q3

REPORT INFORMATION
  Report Type: 
  Country: None (occurrence: None)
  Receive Date: 20110825
  Receipt Date: 20110818
  Transmission Date: 20111222
  Serious: Yes (Other)
  Sender: FDA-Public Use
  Company Number: US-BAYER-2010-008030

PATIENT
  Age: 22 Year
  Sex: Female
  Weight: 54.422 kg

DRUGS (5)
  1. YAZ [Suspect]
     Indication: ACNE
  2. REPLIVA [Concomitant]
     Dosage: UNK
     Route: 048
     Dates: start: 20080310, end: 20080827
  3. YAZ [Suspect]
     Indication: CONTRACEPTION
     Dosage: UNK
     Dates: start: 20031001, end: 20040601
  4. YASMIN [Suspect]
     Indication: CONTRACEPTION
     Dosage: UNK
     Dates: start: 20080701, end: 20080801
  5. YASMIN [Suspect]
     Indication: ACNE

REACTIONS (3)
  - PAIN [None]
  - CHOLECYSTITIS CHRONIC [None]
  - CHOLELITHIASIS [None]
